FAERS Safety Report 5390476-8 (Version None)
Quarter: 2007Q3

REPORT INFORMATION
  Report Type: 
  Country: None (occurrence: None)
  Receive Date: 20070718
  Receipt Date: 20070426
  Transmission Date: 20080115
  Serious: No
  Sender: FDA-Public Use
  Company Number: US-KINGPHARMUSA00001-K200700524

PATIENT

DRUGS (4)
  1. LEVOXYL [Suspect]
     Indication: HYPOTHYROIDISM
     Dosage: 25 MCG, QD
     Route: 048
     Dates: start: 20070401
  2. PAXIL [Concomitant]
     Indication: PANIC DISORDER
     Dosage: 40 MG, QD
     Route: 048
     Dates: start: 20020101
  3. TOPAMAX [Concomitant]
     Indication: MIGRAINE
     Dosage: 25 MG, QD
     Route: 048
     Dates: start: 20070101
  4. OTC MEDICATIONS NOS [Concomitant]
     Dosage: UNK, PRN

REACTIONS (1)
  - PRURITUS [None]
